FAERS Safety Report 4914248-0 (Version None)
Quarter: 2006Q1

REPORT INFORMATION
  Report Type: 
  Country: None (occurrence: None)
  Receive Date: 20060213
  Receipt Date: 20060203
  Transmission Date: 20060701
  Serious: Yes (Death)
  Sender: FDA-Public Use
  Company Number: 2006-02-0126

PATIENT
  Age: 51 Year
  Sex: Female

DRUGS (3)
  1. PEG-INTRON (PEGINTERFERON ALFA-2B) INJECTABLE [Suspect]
     Indication: HEPATITIS C
     Dosage: 100 MCG QWK SUBCUTANEOUS
     Route: 058
     Dates: start: 20050215, end: 20060116
  2. RIBAVIRIN [Suspect]
     Indication: HEPATITIS C
     Dosage: 1000 MG QD ORAL
     Route: 048
     Dates: start: 20050215, end: 20060116
  3. PAXIL [Concomitant]

REACTIONS (1)
  - DEATH [None]
